FAERS Safety Report 20827347 (Version 2)
Quarter: 2022Q3

REPORT INFORMATION
  Report Type: Report from Study
  Country: US (occurrence: US)
  Receive Date: 20220513
  Receipt Date: 20220708
  Transmission Date: 20221027
  Serious: Yes (Other)
  Sender: FDA-Public Use
  Company Number: US-PFIZER INC-2021551011

PATIENT
  Age: 54 Year
  Sex: Female
  Weight: 174.1 kg

DRUGS (5)
  1. ABROCITINIB [Suspect]
     Active Substance: ABROCITINIB
     Indication: Dermatitis atopic
     Dosage: 100 MG, DAILY
     Route: 048
     Dates: start: 20191218, end: 20210512
  2. BENADRYL [Concomitant]
     Active Substance: DIPHENHYDRAMINE HYDROCHLORIDE
     Indication: Eczema
     Dosage: 1 TABLET, AS NEEDED, MOST RECENT DOSE ON 10MAY2021
     Route: 048
     Dates: start: 1999
  3. CETIRIZINE HYDROCHLORIDE [Concomitant]
     Active Substance: CETIRIZINE HYDROCHLORIDE
     Indication: Eczema
     Dosage: 1 TABLET, 1X/DAY, MOST RECENT DOSE ON 11MAY2021
     Route: 048
     Dates: start: 2013
  4. AMLODIPINE BESYLATE [Concomitant]
     Active Substance: AMLODIPINE BESYLATE
     Indication: Hypertension
     Dosage: 1 TABLET, 1X/DAY, MOST RECENT DOSE ON 11MAY2021
     Route: 048
     Dates: start: 20190529
  5. METFORMIN [Concomitant]
     Active Substance: METFORMIN HYDROCHLORIDE
     Indication: Glucose tolerance impaired
     Dosage: 1 TABLET, 1X/DAY, MOST RECENT DOSE ON 11MAY2021
     Route: 048
     Dates: start: 20190529

REACTIONS (1)
  - Invasive breast carcinoma [Not Recovered/Not Resolved]

NARRATIVE: CASE EVENT DATE: 20210430
